FAERS Safety Report 8240256-0 (Version None)
Quarter: 2012Q1

REPORT INFORMATION
  Report Type: 
  Country: None (occurrence: None)
  Receive Date: 20120328
  Receipt Date: 20120320
  Transmission Date: 20120608
  Serious: Yes (Hospitalization)
  Sender: FDA-Public Use
  Company Number: DE-ELI_LILLY_AND_COMPANY-DE201203005468

PATIENT
  Age: 64 Year
  Sex: Male

DRUGS (2)
  1. CORTISONE ACETATE [Concomitant]
     Dosage: 6 MG, QD
  2. FORTEO [Suspect]
     Indication: OSTEOPOROSIS
     Dosage: UNK, QD
     Route: 058
     Dates: start: 20120215

REACTIONS (1)
  - INTERVERTEBRAL DISC DISORDER [None]
